FAERS Safety Report 6410586-3 (Version None)
Quarter: 2009Q4

REPORT INFORMATION
  Report Type: 
  Country: None (occurrence: None)
  Receive Date: 20091021
  Receipt Date: 20091021
  Transmission Date: 20100525
  Serious: Yes (Hospitalization)
  Sender: FDA-Public Use
  Company Number: None

PATIENT
  Age: 65 Year
  Sex: Male
  Weight: 93.1688 kg

DRUGS (2)
  1. IXABEPILONE FOR INJECTION 15MG; BRISTOL MYERS SQUIBB [Suspect]
     Indication: COLON CANCER
     Dosage: 40 MG/M2 Q 3 WEEKS IV
     Route: 042
     Dates: start: 20091002
  2. DASATINIB 50 MG; BRISTOL MYERS SQUIBB [Suspect]
     Dosage: 150 MG DAILY PO
     Route: 048

REACTIONS (1)
  - SMALL INTESTINAL OBSTRUCTION [None]
